FAERS Safety Report 7225350-5 (Version None)
Quarter: 2011Q1

REPORT INFORMATION
  Report Type: 
  Country: None (occurrence: None)
  Receive Date: 20110113
  Receipt Date: 20101223
  Transmission Date: 20110831
  Serious: No
  Sender: FDA-Public Use
  Company Number: US-B.I. PHARMACEUTICALS,INC./RIDGEFIELD-2010-BP-15414BP

PATIENT
  Age: 82 Year
  Sex: Male

DRUGS (8)
  1. ATACAND [Concomitant]
     Indication: HYPERTENSION
  2. TOPROLOL [Concomitant]
     Indication: HEART RATE IRREGULAR
  3. LEVOXYL [Concomitant]
     Indication: THYROID DISORDER
  4. AVACOR [Concomitant]
  5. PRADAXA [Suspect]
     Indication: ATRIAL FIBRILLATION
     Dosage: 300 MG
     Route: 048
     Dates: start: 20101221
  6. HCT [Concomitant]
  7. LYRICA [Concomitant]
  8. POTASSIUM [Concomitant]

REACTIONS (2)
  - NEUROPATHY PERIPHERAL [None]
  - INSOMNIA [None]
